FAERS Safety Report 10279668 (Version 1)
Quarter: 2014Q3

REPORT INFORMATION
  Report Type: Other
  Country: GB (occurrence: GB)
  Receive Date: 20140707
  Receipt Date: 20140707
  Transmission Date: 20150326
  Serious: Yes (Other)
  Sender: FDA-Public Use
  Company Number: GB-PERRIGO-14GB006562

PATIENT

DRUGS (2)
  1. GAVISCON INFANT [Concomitant]
     Indication: PRODUCT USED FOR UNKNOWN INDICATION
     Route: 065
  2. RANITIDINE 15MG/ML PL00427/0132 [Suspect]
     Active Substance: RANITIDINE HYDROCHLORIDE
     Indication: REFLUX LARYNGITIS
     Dosage: 1.3 ML, BID
     Route: 048
     Dates: start: 20140606

REACTIONS (5)
  - Abnormal behaviour [Unknown]
  - Fatigue [None]
  - Abdominal pain upper [Not Recovered/Not Resolved]
  - Discomfort [None]
  - Screaming [None]

NARRATIVE: CASE EVENT DATE: 201406
